FAERS Safety Report 13331646 (Version 1)
Quarter: 2017Q1

REPORT INFORMATION
  Report Type: Spontaneous
  Country: US (occurrence: US)
  Receive Date: 20170314
  Receipt Date: 20170314
  Transmission Date: 20170428
  Serious: No
  Sender: FDA-Public Use
  Company Number: US-JNJFOC-20170109195

PATIENT
  Age: 87 Year
  Sex: Male
  Weight: 63.5 kg

DRUGS (10)
  1. TYLENOL EXTRA STRENGTH [Suspect]
     Active Substance: ACETAMINOPHEN
     Indication: TOOTHACHE
     Route: 048
     Dates: start: 20170109
  2. LUTIN [Concomitant]
     Indication: MACULAR DEGENERATION
     Dosage: 6 MONTHS
     Route: 065
  3. SYNTHROID [Concomitant]
     Active Substance: LEVOTHYROXINE SODIUM
     Indication: DEPRESSION
     Dosage: 1 YEAR
     Route: 065
  4. STOOL SOFTENER (DOCUSATE) [Concomitant]
     Active Substance: DOCUSATE
     Indication: FAECES HARD
     Dosage: 3 MONTHS
     Route: 065
  5. RESTASIS [Concomitant]
     Active Substance: CYCLOSPORINE
     Indication: DRY EYE
     Dosage: 6 MONTHS
     Route: 065
  6. LEVOTHROID [Concomitant]
     Active Substance: LEVOTHYROXINE SODIUM
     Indication: THYROID DISORDER
     Dosage: 2 YEARS
     Route: 065
  7. ALBUTEROL. [Concomitant]
     Active Substance: ALBUTEROL
     Indication: RESPIRATORY DISORDER
     Dosage: 1 YEAR
     Route: 065
  8. DILTIAZEM. [Concomitant]
     Active Substance: DILTIAZEM
     Indication: CARDIAC DISORDER
     Dosage: 2 YEARS
     Route: 065
  9. ASPIRIN. [Concomitant]
     Active Substance: ASPIRIN
     Indication: TOOTH EXTRACTION
     Route: 065
     Dates: start: 20170109
  10. IRON [Concomitant]
     Active Substance: IRON
     Indication: ROUTINE HEALTH MAINTENANCE
     Dosage: 3 MONTHS
     Route: 065

REACTIONS (4)
  - Adverse drug reaction [Not Recovered/Not Resolved]
  - Cough [Not Recovered/Not Resolved]
  - Off label use [Not Recovered/Not Resolved]
  - Peripheral swelling [Not Recovered/Not Resolved]

NARRATIVE: CASE EVENT DATE: 20170109
